FAERS Safety Report 5631973-7 (Version None)
Quarter: 2008Q1

REPORT INFORMATION
  Report Type: 
  Country: None (occurrence: None)
  Receive Date: 20080212
  Receipt Date: 20080130
  Transmission Date: 20080703
  Serious: Yes (Hospitalization)
  Sender: FDA-Public Use
  Company Number: RENA-1000035

PATIENT
  Age: 63 Year
  Sex: Female

DRUGS (6)
  1. RENAGEL [Suspect]
     Indication: RENAL FAILURE CHRONIC
     Dosage: 800 MG, ORAL
     Route: 048
  2. OMEPRAZOL (OMEPRAZOLE) TABLET [Suspect]
     Indication: PROPHYLAXIS AGAINST GASTROINTESTINAL ULCER
     Dosage: 20 MG, QD, ORAL
     Route: 048
  3. ACFOL (FOLIC ACID) TABLET [Concomitant]
  4. LORAMET (LORMETAZEPAM) [Concomitant]
  5. SINTROM (ACENOCOUMAROL) UNKNOWN [Suspect]
     Indication: ATRIAL FIBRILLATION
     Dosage: ORAL
     Route: 048
     Dates: start: 20070313, end: 20070720
  6. TRANGOREX (AMIODARONE HYDROCHLORIDE) INJECTION [Suspect]
     Indication: ATRIAL FIBRILLATION
     Dosage: 200 MG,QD,
     Dates: start: 20070313

REACTIONS (3)
  - CARDIAC TAMPONADE [None]
  - INTERNATIONAL NORMALISED RATIO INCREASED [None]
  - PERICARDIAL HAEMORRHAGE [None]
